FAERS Safety Report 5708953-6 (Version None)
Quarter: 2008Q2

REPORT INFORMATION
  Report Type: 
  Country: None (occurrence: None)
  Receive Date: 20080414
  Receipt Date: 20080414
  Transmission Date: 20081010
  Serious: Yes (Hospitalization)
  Sender: FDA-Public Use
  Company Number: None

PATIENT
  Age: 51 Year
  Sex: Female
  Weight: 122.4712 kg

DRUGS (1)
  1. ACTONEL [Suspect]
     Indication: OSTEOPENIA
     Dates: start: 20080203, end: 20080330

REACTIONS (6)
  - DEHYDRATION [None]
  - HYPERTENSION [None]
  - MIGRAINE [None]
  - NAUSEA [None]
  - TINNITUS [None]
  - VOMITING [None]
